FAERS Safety Report 8308317-5 (Version None)
Quarter: 2012Q2

REPORT INFORMATION
  Report Type: 
  Country: None (occurrence: None)
  Receive Date: 20120424
  Receipt Date: 20120417
  Transmission Date: 20120825
  Serious: Yes (Other)
  Sender: FDA-Public Use
  Company Number: BR-PFIZER INC-2012096384

PATIENT
  Age: 37 Year
  Sex: Male

DRUGS (7)
  1. DIAZEPAM [Concomitant]
     Dosage: STRENGTH 10 MG, ONCE DAILY
  2. FLUOXETINE [Concomitant]
     Dosage: STRENGTH 20 MG, ONCE DAILY
  3. OMEPRAZOLE [Concomitant]
     Dosage: STRENGTH 40 MG
  4. DIMETICONE [Concomitant]
     Dosage: 30 DROPS EVERY 8 HOURS
  5. ZYVOX [Suspect]
     Dosage: 600 MG, 2X/DAY
     Route: 048
     Dates: start: 20120414
  6. TRAMADOL HYDROCHLORIDE [Concomitant]
     Dosage: STRENGTH 100 MG, EVERY 6 HOURS
     Route: 042
  7. HEPARIN [Concomitant]
     Dosage: UNK

REACTIONS (5)
  - MULTIPLE INJURIES [None]
  - SEPSIS [None]
  - URINARY TRACT INFECTION ENTEROCOCCAL [None]
  - PYREXIA [None]
  - WHITE BLOOD CELL DISORDER [None]
